FAERS Safety Report 4528604-6 (Version None)
Quarter: 2004Q4

REPORT INFORMATION
  Report Type: 
  Country: None (occurrence: None)
  Receive Date: 20041216
  Receipt Date: 20040916
  Transmission Date: 20050328
  Serious: Yes (Other)
  Sender: FDA-Public Use
  Company Number: PHEH2004US10013

PATIENT
  Age: 52 Year
  Sex: Female
  Weight: 137 kg

DRUGS (4)
  1. TEGRETOL [Suspect]
     Indication: FACIAL NERVE DISORDER
     Dosage: UNK,UNK
  2. LISINOPRIL AND HYDROCHLOROTHIAZIDE [Suspect]
     Indication: HYPERTENSION
     Dosage: ONE TAB. DAILY
     Route: 048
     Dates: start: 20040501, end: 20040808
  3. TYLENOL (CAPLET) [Concomitant]
  4. VICODIN [Suspect]

REACTIONS (18)
  - ASTHENIA [None]
  - BALANCE DISORDER [None]
  - BLOOD CREATININE INCREASED [None]
  - BLOOD PRESSURE DECREASED [None]
  - CHILLS [None]
  - DEHYDRATION [None]
  - DIFFICULTY IN WALKING [None]
  - DRUG HYPERSENSITIVITY [None]
  - HYPOAESTHESIA [None]
  - PAIN [None]
  - PRURITUS [None]
  - PYREXIA [None]
  - RASH ERYTHEMATOUS [None]
  - RASH GENERALISED [None]
  - RHABDOMYOLYSIS [None]
  - SCAB [None]
  - SWELLING FACE [None]
  - VIRAL INFECTION [None]
